FAERS Safety Report 6109439-X (Version None)
Quarter: 2009Q1

REPORT INFORMATION
  Report Type: 
  Country: None (occurrence: None)
  Receive Date: 20090310
  Receipt Date: 20090227
  Transmission Date: 20090719
  Serious: Yes (Other)
  Sender: FDA-Public Use
  Company Number: GB-BAXTER-2009BH003514

PATIENT
  Sex: Male

DRUGS (13)
  1. IGIV, UNSPECIFIED PRODUCT [Suspect]
     Indication: DRUG USE FOR UNKNOWN INDICATION
     Route: 064
  2. FORANE [Suspect]
     Indication: ANAESTHESIA
     Route: 064
  3. ALFENTANIL [Suspect]
     Indication: DRUG USE FOR UNKNOWN INDICATION
     Route: 064
  4. ASPIRIN [Suspect]
     Indication: ANTIPHOSPHOLIPID SYNDROME
     Route: 064
  5. AZATHIOPRINE [Suspect]
     Indication: IDIOPATHIC THROMBOCYTOPENIC PURPURA
     Route: 064
  6. METOCLOPRAMIDE HYDROCHLORIDE [Suspect]
     Indication: DRUG USE FOR UNKNOWN INDICATION
     Route: 064
  7. PROTAMINE SULFATE [Suspect]
     Indication: DRUG USE FOR UNKNOWN INDICATION
     Route: 064
  8. RANITIDINE [Suspect]
     Indication: DRUG USE FOR UNKNOWN INDICATION
     Route: 064
  9. SODIUM CITRATE [Suspect]
     Indication: DRUG USE FOR UNKNOWN INDICATION
     Route: 064
  10. SUCCINYLCHOLINE CHLORIDE [Suspect]
     Indication: DRUG USE FOR UNKNOWN INDICATION
     Route: 064
  11. THIOPENTAL SODIUM [Suspect]
     Indication: DRUG USE FOR UNKNOWN INDICATION
     Route: 064
  12. DALTEPARIN SODIUM [Suspect]
     Indication: ANTIPHOSPHOLIPID SYNDROME
     Route: 064
  13. DALTEPARIN SODIUM [Suspect]
     Route: 064

REACTIONS (4)
  - DRUG EXPOSURE DURING PREGNANCY [None]
  - FOETAL MALPRESENTATION [None]
  - PREMATURE LABOUR [None]
  - PREMATURE RUPTURE OF MEMBRANES [None]
